FAERS Safety Report 15693466 (Version 5)
Quarter: 2019Q1

REPORT INFORMATION
  Report Type: Spontaneous
  Country: CZ (occurrence: CZ)
  Receive Date: 20181206
  Receipt Date: 20190329
  Transmission Date: 20190417
  Serious: Yes (Life-Threatening, Hospitalization, Other)
  Sender: FDA-Public Use
  Company Number: CZ-ABBVIE-18S-217-2576554-00

PATIENT
  Age: 50 Year
  Sex: Male

DRUGS (6)
  1. NOVALGIN (METAMIZOLE SODIUM) [Suspect]
     Active Substance: METAMIZOLE SODIUM
     Indication: LAPAROSCOPIC SURGERY
     Route: 042
     Dates: start: 20181126, end: 20181126
  2. NOVALGIN (METAMIZOLE SODIUM) [Suspect]
     Active Substance: METAMIZOLE SODIUM
     Route: 042
  3. PROPOFOL. [Suspect]
     Active Substance: PROPOFOL
     Indication: LAPAROSCOPIC SURGERY
     Dosage: DOSAGE FORM: EMULSION
     Route: 042
     Dates: start: 20181126, end: 20181126
  4. SODIUM CHLORIDE. [Suspect]
     Active Substance: SODIUM CHLORIDE
     Indication: LAPAROSCOPIC SURGERY
     Dosage: 250 ML, DOSAGE FORM: SOLUTION
     Route: 042
     Dates: start: 20181126, end: 20181126
  5. SEVORANE [Suspect]
     Active Substance: SEVOFLURANE
     Indication: LAPAROSCOPIC SURGERY
     Dosage: DOSAGE FORM: SOLUTION
     Route: 055
     Dates: start: 20181126, end: 20181126
  6. SUFENTA [Suspect]
     Active Substance: SUFENTANIL CITRATE
     Indication: LAPAROSCOPIC SURGERY
     Dosage: STRENGTH 10 MCG PER 2 ML
     Route: 040
     Dates: start: 20181126, end: 20181126

REACTIONS (7)
  - Sepsis [Recovering/Resolving]
  - Hepatorenal failure [Recovering/Resolving]
  - Nausea [Recovering/Resolving]
  - Thrombocytopenia [Recovering/Resolving]
  - Vomiting [Recovering/Resolving]
  - Suspected product contamination [Unknown]
  - Device issue [Unknown]

NARRATIVE: CASE EVENT DATE: 201811
